FAERS Safety Report 9587796 (Version 1)
Quarter: 2013Q4

REPORT INFORMATION
  Report Type: Spontaneous
  Country: US (occurrence: US)
  Receive Date: 20131003
  Receipt Date: 20131003
  Transmission Date: 20140711
  Serious: Yes (Other)
  Sender: FDA-Public Use
  Company Number: US-PFIZER INC-2013278113

PATIENT
  Age: 6 Year
  Sex: Male

DRUGS (7)
  1. METHYLPREDNISOLONE SODIUM SUCCINATE [Suspect]
     Indication: POLYARTERITIS NODOSA
     Dosage: THREE DAILY PULSES OF METHYLPREDNISOLONE (30 MG/KG)
     Route: 042
     Dates: start: 199008
  2. CYCLOPHOSPHAMIDE [Suspect]
     Indication: POLYARTERITIS NODOSA
     Dosage: 1 G/M2, MONTHLY
     Route: 042
     Dates: start: 199008
  3. CYCLOPHOSPHAMIDE [Suspect]
     Indication: POLYARTERITIS NODOSA
     Dosage: 2 MG/KG, DAILY
     Route: 048
     Dates: end: 199109
  4. PREDNISONE [Concomitant]
     Indication: POLYARTERITIS NODOSA
     Dosage: HIGH DOSE (40 - 60 MG), DAILY
  5. PREDNISONE [Concomitant]
     Dosage: AVERAGE OF 40 MG, DAYILY
     Dates: start: 1990, end: 1999
  6. PREDNISONE [Concomitant]
     Dosage: UNK
     Dates: end: 200308
  7. MUROMONAB-CD3 [Concomitant]
     Indication: POLYARTERITIS NODOSA
     Dosage: UNK
     Dates: start: 199009

REACTIONS (1)
  - Cystitis haemorrhagic [Unknown]
